FAERS Safety Report 15112488 (Version 1)
Quarter: 2018Q3

REPORT INFORMATION
  Report Type: Report from Study
  Country: CO (occurrence: CO)
  Receive Date: 20180705
  Receipt Date: 20180705
  Transmission Date: 20181010
  Serious: Yes (Hospitalization)
  Sender: FDA-Public Use
  Company Number: CO-NOVOPROD-591663

PATIENT
  Age: 82 Year
  Sex: Male
  Weight: 84 kg

DRUGS (2)
  1. NOVORAPID [Suspect]
     Active Substance: INSULIN ASPART
     Indication: TYPE 2 DIABETES MELLITUS
     Dosage: 18 U, TID(18 U AT BREAKFAST, 18 U AT LUNCH, 18 U AT DINNER)
     Route: 058
  2. TRESIBA [Suspect]
     Active Substance: INSULIN DEGLUDEC
     Indication: TYPE 2 DIABETES MELLITUS
     Dosage: 50.00 U, QD
     Route: 058
     Dates: start: 2017

REACTIONS (7)
  - Urticaria [Recovered/Resolved]
  - Application site pain [Recovered/Resolved]
  - Cerebral infarction [Not Recovered/Not Resolved]
  - Cerebral infarction [Unknown]
  - Injection site mass [Recovered/Resolved]
  - Hyperglycaemia [Not Recovered/Not Resolved]
  - Urinary tract infection [Recovered/Resolved]

NARRATIVE: CASE EVENT DATE: 2018
